FAERS Safety Report 5993440-0 (Version None)
Quarter: 2008Q4

REPORT INFORMATION
  Report Type: 
  Country: None (occurrence: None)
  Receive Date: 20081212
  Receipt Date: 20081205
  Transmission Date: 20090506
  Serious: Yes (Other)
  Sender: FDA-Public Use
  Company Number: US-BAYER-200840163NA

PATIENT
  Age: 63 Year
  Sex: Male

DRUGS (4)
  1. LEVITRA [Suspect]
     Indication: ERECTILE DYSFUNCTION
     Route: 048
     Dates: start: 20080401
  2. VYTORIN [Concomitant]
  3. BENAZEPRIL HYDROCHLORIDE [Concomitant]
  4. VITAMINS [Concomitant]

REACTIONS (2)
  - DEAFNESS [None]
  - TINNITUS [None]
